FAERS Safety Report 23766949 (Version 1)
Quarter: 2024Q2

REPORT INFORMATION
  Report Type: Report from Study
  Country: GB (occurrence: GB)
  Receive Date: 20240422
  Receipt Date: 20240422
  Transmission Date: 20240716
  Serious: Yes (Hospitalization)
  Sender: FDA-Public Use
  Company Number: GB-ABBVIE-5726775

PATIENT
  Age: 68 Year
  Sex: Male
  Weight: 76 kg

DRUGS (14)
  1. SKYRIZI [Suspect]
     Active Substance: RISANKIZUMAB-RZAA
     Indication: Psoriasis
     Route: 058
     Dates: start: 20230201
  2. HYDROCORTISONE [Concomitant]
     Active Substance: HYDROCORTISONE
     Indication: Product used for unknown indication
     Dates: start: 20220601
  3. BUDESONIDE\FORMOTEROL\GLYCOPYRRONIUM [Concomitant]
     Active Substance: BUDESONIDE\FORMOTEROL\GLYCOPYRRONIUM
     Indication: Product used for unknown indication
     Dosage: FORM INHALER
     Route: 055
     Dates: start: 20211001
  4. OMEPRAZOLE [Concomitant]
     Active Substance: OMEPRAZOLE
     Indication: Product used for unknown indication
     Dates: start: 20220601
  5. CETIRIZINE [Concomitant]
     Active Substance: CETIRIZINE HYDROCHLORIDE
     Indication: Product used for unknown indication
     Dates: start: 20220601
  6. COMIRNATY (TOZINAMERAN) [Concomitant]
     Active Substance: TOZINAMERAN
     Indication: Product used for unknown indication
     Dates: start: 20211030, end: 20211030
  7. COMIRNATY (TOZINAMERAN) [Concomitant]
     Active Substance: TOZINAMERAN
     Indication: Product used for unknown indication
     Dates: start: 20231019, end: 20231019
  8. COMIRNATY (TOZINAMERAN) [Concomitant]
     Active Substance: TOZINAMERAN
     Indication: Product used for unknown indication
     Dates: start: 20230518, end: 20230518
  9. ALBUTEROL [Concomitant]
     Active Substance: ALBUTEROL
     Indication: Product used for unknown indication
     Dates: start: 20180101
  10. FLUDROCORTISONE [Concomitant]
     Active Substance: FLUDROCORTISONE
     Indication: Product used for unknown indication
     Dates: start: 20220601
  11. Spikevax [Concomitant]
     Indication: COVID-19 immunisation
     Dosage: ONE IN ONCE FREQUENCY
     Route: 030
     Dates: start: 20221001, end: 20221001
  12. Spikevax [Concomitant]
     Indication: COVID-19 immunisation
     Dosage: ONE IN ONCE FREQUENCY
     Route: 030
     Dates: start: 20220520, end: 20220520
  13. COVID-19 vaccine [Concomitant]
     Indication: COVID-19 immunisation
     Dosage: (OXFORD/ASTRAZENECA)?ONE IN ONCE FREQUENCY
     Route: 030
     Dates: start: 20210506, end: 20210506
  14. COVID-19 vaccine [Concomitant]
     Indication: COVID-19 immunisation
     Dosage: (OXFORD/ASTRAZENECA)?ONE IN ONCE FREQUENCY
     Route: 030
     Dates: start: 20210218, end: 20210218

REACTIONS (4)
  - Arthritis [Recovered/Resolved]
  - Arthritis infective [Recovered/Resolved]
  - Joint injury [Recovered/Resolved]
  - Fall [Recovered/Resolved]

NARRATIVE: CASE EVENT DATE: 20230731
